FAERS Safety Report 20826414 (Version 8)
Quarter: 2022Q3

REPORT INFORMATION
  Report Type: Report from Study
  Country: MX (occurrence: MX)
  Receive Date: 20220513
  Receipt Date: 20220823
  Transmission Date: 20221027
  Serious: Yes (Disabling, Other)
  Sender: FDA-Public Use
  Company Number: MX-BoehringerIngelheim-2022-BI-106751

PATIENT
  Age: 73 Year
  Sex: Female
  Weight: 40 kg

DRUGS (6)
  1. OFEV [Suspect]
     Active Substance: NINTEDANIB
     Indication: Idiopathic pulmonary fibrosis
     Route: 048
     Dates: start: 20211002
  2. OFEV [Suspect]
     Active Substance: NINTEDANIB
     Route: 048
     Dates: start: 20211006, end: 20211218
  3. OFEV [Suspect]
     Active Substance: NINTEDANIB
     Route: 048
     Dates: start: 20220101, end: 20220510
  4. OFEV [Suspect]
     Active Substance: NINTEDANIB
     Dates: start: 20220510, end: 20220609
  5. OFEV [Suspect]
     Active Substance: NINTEDANIB
     Route: 048
     Dates: start: 20220102, end: 20220715
  6. INFLUENZA VIRUS VACCINE [Concomitant]
     Active Substance: INFLUENZA VIRUS VACCINE
     Indication: Product used for unknown indication

REACTIONS (34)
  - Osteoporosis [Unknown]
  - Pneumothorax [Unknown]
  - Rib fracture [Unknown]
  - Respiratory distress [Not Recovered/Not Resolved]
  - Fatigue [Unknown]
  - Diarrhoea [Recovered/Resolved]
  - Headache [Recovered/Resolved]
  - Weight increased [Recovered/Resolved]
  - Diarrhoea [Recovered/Resolved]
  - Pyrexia [Recovered/Resolved]
  - Cough [Not Recovered/Not Resolved]
  - Pneumonia [Recovered/Resolved]
  - Pneumonia [Recovering/Resolving]
  - Pneumonitis [Not Recovered/Not Resolved]
  - Cough [Unknown]
  - Gastritis [Unknown]
  - Sputum discoloured [Unknown]
  - Weight decreased [Not Recovered/Not Resolved]
  - Illness [Unknown]
  - Chromaturia [Not Recovered/Not Resolved]
  - Dizziness [Unknown]
  - Nasal dryness [Unknown]
  - Dyspepsia [Recovered/Resolved]
  - Fatigue [Not Recovered/Not Resolved]
  - Abnormal faeces [Recovered/Resolved]
  - Parosmia [Unknown]
  - Urine viscosity increased [Not Recovered/Not Resolved]
  - Rash [Recovered/Resolved]
  - Decreased appetite [Recovered/Resolved]
  - Weight decreased [Recovered/Resolved]
  - Confusional state [Recovered/Resolved]
  - Underweight [Not Recovered/Not Resolved]
  - Cough [Unknown]
  - Emotional distress [Unknown]

NARRATIVE: CASE EVENT DATE: 20211022
